FAERS Safety Report 8170523-0 (Version None)
Quarter: 2012Q1

REPORT INFORMATION
  Report Type: 
  Country: None (occurrence: None)
  Receive Date: 20120104
  Receipt Date: 20111122
  Transmission Date: 20120608
  Serious: No
  Sender: FDA-Public Use
  Company Number: 2011HGS-002489

PATIENT
  Age: 55 Year
  Sex: Female
  Weight: 77.1115 kg

DRUGS (17)
  1. PROMETHAZINE(PROMETHAZINE)(PROMETHAZINE) [Concomitant]
  2. PRILOSEC(OMEPRAZOLE)(OMEPRAZOLE) [Concomitant]
  3. TRAZODONE(TRAZODONE)(TRAZODONE) [Concomitant]
  4. LORAZEPAM [Concomitant]
  5. PRISTIQ(ANTIDEPRESSANTS)(DESVENLAFAXINE) [Concomitant]
  6. ONDANSETRON [Concomitant]
  7. BENLYSTA [Suspect]
     Indication: SYSTEMIC LUPUS ERYTHEMATOSUS
     Dosage: 10 MG/KG, EVERY 2 WEEKS X3 THEN EVERY 4 WEEKS, INTRAVENOUS
     Route: 041
     Dates: start: 20110607
  8. FENTANYL [Concomitant]
  9. FUROSEMIDE [Concomitant]
  10. LYRICA [Concomitant]
  11. VITAMIN D(ERGOCALCIFEROL)(ERGOCALCIFEROL) [Concomitant]
  12. MECLIZINE (MECLOZINE) (MECLOZINE) [Concomitant]
  13. TEMAZEPAM [Concomitant]
  14. PROVIGIL [Concomitant]
  15. POTASSIUM (POTASSIUM) (POTASSIUM) [Concomitant]
  16. MELOXICAM [Concomitant]
  17. ACTONEL(RISEDRONATE SODIUM)(RISEDRONATE SODIUM) [Concomitant]

REACTIONS (7)
  - WEIGHT DECREASED [None]
  - NAUSEA [None]
  - FATIGUE [None]
  - DEPRESSION [None]
  - DECREASED APPETITE [None]
  - DIARRHOEA [None]
  - CRYING [None]
